FAERS Safety Report 5279005-7 (Version None)
Quarter: 2007Q1

REPORT INFORMATION
  Report Type: 
  Country: None (occurrence: None)
  Receive Date: 20070328
  Receipt Date: 20060929
  Transmission Date: 20070707
  Serious: Yes (Hospitalization)
  Sender: FDA-Public Use
  Company Number: US-AMGEN-US195195

PATIENT
  Sex: Female

DRUGS (6)
  1. NEULASTA [Suspect]
     Indication: CHEMOTHERAPY
     Route: 058
     Dates: start: 20060101
  2. GEMZAR [Concomitant]
     Route: 065
  3. TAXOTERE [Concomitant]
     Route: 065
  4. DECADRON [Concomitant]
     Route: 065
  5. NYSTATIN [Concomitant]
     Route: 065
  6. OXYCONTIN [Concomitant]
     Route: 065

REACTIONS (5)
  - ASTHENIA [None]
  - BONE PAIN [None]
  - DIZZINESS [None]
  - THROMBOCYTOPENIA [None]
  - VOMITING [None]
